FAERS Safety Report 9611171 (Version 1)
Quarter: 2013Q4

REPORT INFORMATION
  Report Type: Report from Study
  Country: US (occurrence: US)
  Receive Date: 20131009
  Receipt Date: 20131009
  Transmission Date: 20140711
  Serious: Yes (Other)
  Sender: FDA-Public Use
  Company Number: US-ROCHE-1284042

PATIENT
  Sex: 0

DRUGS (2)
  1. KETOROLAC [Suspect]
     Indication: ANALGESIC THERAPY
     Dosage: 0.48 +/- 0.03 MG/KG EVERY 6 HOURS, WITH THE EXCEPTION OF TWO PATIENTS ONE IN EACH GROUP WHO WERE DOS
     Route: 065
  2. ASPIRIN [Interacting]
     Indication: ANALGESIC THERAPY
     Dosage: 20.25 MG OR 40.5MG
     Route: 065

REACTIONS (2)
  - Renal failure acute [Unknown]
  - Drug interaction [Unknown]
